FAERS Safety Report 6179808-0 (Version None)
Quarter: 2009Q2

REPORT INFORMATION
  Report Type: 
  Country: None (occurrence: None)
  Receive Date: 20090501
  Receipt Date: 20090416
  Transmission Date: 20091009
  Serious: Yes (Hospitalization)
  Sender: FDA-Public Use
  Company Number: ADE#09-097DPR

PATIENT
  Age: 76 Year
  Sex: Female

DRUGS (12)
  1. DIGOXIN [Suspect]
     Indication: CARDIAC DISORDER
     Dates: end: 20090405
  2. WARFARIN SODIUM [Concomitant]
  3. DIOVAN HCT [Concomitant]
  4. METOPROLOL [Concomitant]
  5. HYDRALAZINE HCL [Concomitant]
  6. BUMEX [Concomitant]
  7. VITAMINS E, C AND D [Concomitant]
  8. OSCAL [Concomitant]
  9. MSM [Concomitant]
  10. CRANBERRY FRUT DRUG [Concomitant]
  11. CRESTOR [Concomitant]
  12. TYLENOL AT BEDTIME [Concomitant]

REACTIONS (10)
  - ABDOMINAL HERNIA [None]
  - ALOPECIA [None]
  - BLOOD GLUCOSE DECREASED [None]
  - CARDIAC DISORDER [None]
  - DIABETIC COMA [None]
  - FEELING ABNORMAL [None]
  - LOCALISED INFECTION [None]
  - OEDEMA PERIPHERAL [None]
  - UNEVALUABLE EVENT [None]
  - UPPER EXTREMITY MASS [None]
